FAERS Safety Report 19666982 (Version 11)
Quarter: 2022Q2

REPORT INFORMATION
  Report Type: Report from Study
  Country: US (occurrence: US)
  Receive Date: 20210806
  Receipt Date: 20220510
  Transmission Date: 20220721
  Serious: Yes (Hospitalization, Other)
  Sender: FDA-Public Use
  Company Number: US-AMRYT PHARMACEUTICALS DAC-AEGR005143

PATIENT
  Age: 21 Year
  Sex: Female

DRUGS (21)
  1. METRELEPTIN [Suspect]
     Active Substance: METRELEPTIN
     Indication: Congenital generalised lipodystrophy
     Dosage: 1 MILLILITER, QD
     Route: 058
     Dates: start: 202012
  2. METRELEPTIN [Suspect]
     Active Substance: METRELEPTIN
     Indication: Congenital generalised lipodystrophy
     Dosage: 2.5 MILLIGRAM
     Route: 058
     Dates: start: 20210118, end: 20210122
  3. METRELEPTIN [Suspect]
     Active Substance: METRELEPTIN
     Indication: Lipodystrophy acquired
     Dosage: 3.75 MILLIGRAM, QD
     Dates: start: 20210123, end: 20210209
  4. METRELEPTIN [Suspect]
     Active Substance: METRELEPTIN
     Dosage: 5 MILLIGRAM, QD
     Route: 058
     Dates: start: 20210210, end: 20220221
  5. METRELEPTIN [Suspect]
     Active Substance: METRELEPTIN
     Dosage: 3.75 MILLIGRAM, QD
     Dates: start: 20220228, end: 20220228
  6. METRELEPTIN [Suspect]
     Active Substance: METRELEPTIN
     Dosage: 5 MILLIGRAM, QD
     Dates: start: 20220301, end: 20220314
  7. METRELEPTIN [Suspect]
     Active Substance: METRELEPTIN
     Dosage: 3.75 MILLIGRAM, QD
     Dates: start: 20220315
  8. METFORMIN [Concomitant]
     Active Substance: METFORMIN HYDROCHLORIDE
     Indication: Diabetes mellitus
     Dosage: 1000 MILLIGRAM, BID
     Route: 048
     Dates: start: 2018, end: 20210701
  9. METFORMIN [Concomitant]
     Active Substance: METFORMIN HYDROCHLORIDE
     Dosage: 1000 MILLIGRAM, BID
     Route: 048
     Dates: start: 20210705
  10. FENOFIBRATE [Concomitant]
     Active Substance: FENOFIBRATE
     Indication: Hypertriglyceridaemia
     Dosage: 160 MILLIGRAM, QD
     Route: 048
     Dates: start: 201912
  11. ERGOCALCIFEROL [Concomitant]
     Active Substance: ERGOCALCIFEROL
     Indication: Vitamin D decreased
     Dosage: 50000 INTERNATIONAL UNIT, Q WEEKLY
     Route: 048
     Dates: start: 20210219
  12. SPIRONOLACTONE [Concomitant]
     Active Substance: SPIRONOLACTONE
     Indication: Hirsutism
     Dosage: 25 MILLIGRAM, QD
     Route: 048
     Dates: start: 20211015
  13. INSULIN NOS [Concomitant]
     Active Substance: INSULIN NOS
     Indication: Diabetes mellitus
     Dosage: 100 INTERNATIONAL UNIT, QD
     Route: 058
  14. INSULIN NOS [Concomitant]
     Active Substance: INSULIN NOS
     Dosage: 24 INTERNATIONAL UNIT, SINGLE
     Route: 058
     Dates: start: 20220225, end: 20220225
  15. INSULIN NOS [Concomitant]
     Active Substance: INSULIN NOS
     Dosage: 30 INTERNATIONAL UNIT, SINGLE
     Route: 058
     Dates: start: 20220228, end: 20220228
  16. INSULIN NOS [Concomitant]
     Active Substance: INSULIN NOS
     Dosage: 80 INTERNATIONAL UNIT, QD
     Route: 058
     Dates: start: 20220301, end: 20220304
  17. INSULIN NOS [Concomitant]
     Active Substance: INSULIN NOS
     Dosage: 100 INTERNATIONAL UNIT PER MILLILITRE, QD
     Route: 042
     Dates: start: 20220303, end: 20220304
  18. INSULIN NOS [Concomitant]
     Active Substance: INSULIN NOS
     Dosage: 100 INTERNATIONAL UNIT, QD
     Route: 058
     Dates: start: 20220305
  19. INSULIN LISPRO [Concomitant]
     Active Substance: INSULIN LISPRO
     Indication: Diabetes mellitus
     Dosage: 6 INTERNATIONAL UNIT, QD
     Route: 058
     Dates: start: 20220225, end: 20220301
  20. INSULIN LISPRO [Concomitant]
     Active Substance: INSULIN LISPRO
     Dosage: 9 INTERNATIONAL UNIT, QD
     Route: 058
     Dates: start: 20220301, end: 20220304
  21. SODIUM CHLORIDE [Concomitant]
     Active Substance: SODIUM CHLORIDE
     Indication: Diabetes mellitus
     Dosage: 0.9 % CONTINUOUS
     Route: 042
     Dates: start: 20220303, end: 20220304

REACTIONS (14)
  - Hepatitis acute [Not Recovered/Not Resolved]
  - Autoimmune hepatitis [Not Recovered/Not Resolved]
  - Hepatic cirrhosis [Unknown]
  - Steatohepatitis [Unknown]
  - Menstrual disorder [Recovered/Resolved]
  - Hyperglycaemia [Recovered/Resolved]
  - Viral infection [Recovered/Resolved]
  - Jaundice [Recovered/Resolved]
  - Blood bilirubin increased [Not Recovered/Not Resolved]
  - Weight decreased [Not Recovered/Not Resolved]
  - Abdominal pain [Recovered/Resolved]
  - Treatment noncompliance [Unknown]
  - Drug ineffective [Unknown]
  - Therapy interrupted [Unknown]

NARRATIVE: CASE EVENT DATE: 20201201
